FAERS Safety Report 4750624-7 (Version None)
Quarter: 2005Q3

REPORT INFORMATION
  Report Type: 
  Country: None (occurrence: None)
  Receive Date: 20050823
  Receipt Date: 20050812
  Transmission Date: 20060218
  Serious: Yes (Hospitalization)
  Sender: FDA-Public Use
  Company Number: PHEH2005US09011

PATIENT
  Age: 33 Year
  Sex: Female

DRUGS (7)
  1. TRILEPTAL [Suspect]
     Indication: CONVULSION
     Dosage: 900 MG, QD
     Dates: start: 20041012
  2. TRILEPTAL [Suspect]
     Dosage: 300 MG, BID
     Dates: start: 20050531
  3. TRILEPTAL [Suspect]
     Dosage: 900 MG, QD
     Dates: start: 20050601
  4. TEGRETOL [Suspect]
     Indication: CONVULSION
     Dosage: 300 MG, BID
     Dates: start: 20040101, end: 20041011
  5. DILANTIN [Suspect]
     Indication: CONVULSION
     Dosage: UNK, UNK
     Route: 042
     Dates: start: 20040720, end: 20040720
  6. DILANTIN [Suspect]
     Dosage: 300 MG, QD
     Dates: start: 20040701, end: 20040101
  7. ZOLOFT [Concomitant]
     Indication: DEPRESSION
     Dosage: 100 MG, QD
     Dates: start: 20040201

REACTIONS (5)
  - BACK PAIN [None]
  - CARDIAC PACEMAKER INSERTION [None]
  - CONVULSION [None]
  - MUSCULOSKELETAL STIFFNESS [None]
  - PULSE ABNORMAL [None]
